FAERS Safety Report 9590170 (Version 1)
Quarter: 2013Q4

REPORT INFORMATION
  Report Type: Spontaneous
  Country: US (occurrence: US)
  Receive Date: 20131003
  Receipt Date: 20131003
  Transmission Date: 20140711
  Serious: No
  Sender: FDA-Public Use
  Company Number: US-AMGEN-USASP2012074892

PATIENT
  Sex: Male
  Weight: 74.83 kg

DRUGS (4)
  1. ENBREL [Suspect]
     Indication: PSORIASIS
     Dosage: 50 MG, QWK
     Route: 058
  2. HUMIRA [Concomitant]
     Dosage: UNK
  3. CLOBETASOL [Concomitant]
     Dosage: UNK, 0.05%
  4. DOVONEX [Concomitant]
     Dosage: UNK,0.005%

REACTIONS (1)
  - Drug effect incomplete [Unknown]
